FAERS Safety Report 6213803-8 (Version None)
Quarter: 2009Q2

REPORT INFORMATION
  Report Type: 
  Country: None (occurrence: None)
  Receive Date: 20090602
  Receipt Date: 20090521
  Transmission Date: 20091009
  Serious: Yes (Death)
  Sender: FDA-Public Use
  Company Number: CLOF-1000568

PATIENT
  Age: 58 Year
  Sex: Male

DRUGS (2)
  1. CLOLAR [Suspect]
     Indication: ACUTE LYMPHOCYTIC LEUKAEMIA
     Dosage: INTRAVENOUS; INTRAVENOUS
     Route: 042
     Dates: start: 20090504, end: 20090504
  2. CLOLAR [Suspect]
     Indication: ACUTE LYMPHOCYTIC LEUKAEMIA
     Dosage: INTRAVENOUS; INTRAVENOUS
     Route: 042
     Dates: start: 20090506, end: 20090509

REACTIONS (1)
  - DEATH [None]
